FAERS Safety Report 5838398-X (Version None)
Quarter: 2008Q3

REPORT INFORMATION
  Report Type: 
  Country: None (occurrence: None)
  Receive Date: 20080806
  Receipt Date: 20080729
  Transmission Date: 20090109
  Serious: Yes (Other)
  Sender: FDA-Public Use
  Company Number: TPA2008A00986

PATIENT
  Age: 73 Year
  Weight: 88.4514 kg

DRUGS (11)
  1. ACTOS [Suspect]
     Indication: TYPE 2 DIABETES MELLITUS
     Dosage: 15 MG, 1 IN 1 D, PER ORAL;  30 MG, 1 IN 1 D, PER ORAL
     Route: 048
     Dates: start: 20071001, end: 20071102
  2. ACTOS [Suspect]
     Indication: TYPE 2 DIABETES MELLITUS
     Dosage: 15 MG, 1 IN 1 D, PER ORAL;  30 MG, 1 IN 1 D, PER ORAL
     Route: 048
     Dates: start: 20071103
  3. ASPIRIN [Concomitant]
  4. METOPROLOL TARTRATE [Concomitant]
  5. GEMFIBROZIL [Concomitant]
  6. LOVASTATIN [Concomitant]
  7. LISINOPRIL [Concomitant]
  8. FOLIC ACID [Concomitant]
  9. MULTIVITAMIN(ERGOCALCIFEROL, ASCORBIC ACID, FOLIC ACID, THIAMINE HYDRO [Concomitant]
  10. VITAMIN B12 (CYANCOBALAMIN) [Concomitant]
  11. FUROSEMIDE [Concomitant]

REACTIONS (7)
  - BLOOD GLUCOSE INCREASED [None]
  - BLOOD UREA INCREASED [None]
  - FLUID RETENTION [None]
  - GAIT DISTURBANCE [None]
  - GLYCOSYLATED HAEMOGLOBIN INCREASED [None]
  - SWELLING [None]
  - WEIGHT INCREASED [None]
